FAERS Safety Report 8425678-7 (Version None)
Quarter: 2012Q2

REPORT INFORMATION
  Report Type: 
  Country: None (occurrence: None)
  Receive Date: 20120611
  Receipt Date: 20120607
  Transmission Date: 20120825
  Serious: Yes (Disabling, Other)
  Sender: FDA-Public Use
  Company Number: PHEH2011US011029

PATIENT
  Sex: Male

DRUGS (6)
  1. THALIDOMIDE [Concomitant]
  2. AREDIA [Suspect]
     Indication: NEOPLASM MALIGNANT
  3. FLONASE [Concomitant]
  4. ZOMETA [Suspect]
     Indication: MULTIPLE MYELOMA
  5. SYNTHROID [Concomitant]
  6. ZOLOFT [Concomitant]

REACTIONS (35)
  - CONSTIPATION [None]
  - HYPOAESTHESIA [None]
  - SINUS DISORDER [None]
  - EXPOSED BONE IN JAW [None]
  - DEFORMITY [None]
  - EMOTIONAL DISTRESS [None]
  - ANXIETY [None]
  - INJURY [None]
  - DIABETIC NEUROPATHY [None]
  - PARAESTHESIA [None]
  - PAIN [None]
  - MASTICATION DISORDER [None]
  - PERIODONTAL DISEASE [None]
  - VISION BLURRED [None]
  - HYPERLIPIDAEMIA [None]
  - FATIGUE [None]
  - OSTEONECROSIS OF JAW [None]
  - OSTEOARTHRITIS [None]
  - DRY SKIN [None]
  - SUBCUTANEOUS ABSCESS [None]
  - DISCOMFORT [None]
  - OSTEOMYELITIS [None]
  - COMPRESSION FRACTURE [None]
  - TYPE 2 DIABETES MELLITUS [None]
  - LACTOSE INTOLERANCE [None]
  - OSTEOLYSIS [None]
  - LIFE EXPECTANCY SHORTENED [None]
  - KYPHOSIS [None]
  - VITAMIN D DEFICIENCY [None]
  - NOCTURIA [None]
  - POLYURIA [None]
  - OSTEOPENIA [None]
  - ANHEDONIA [None]
  - ARTERIOSCLEROSIS CORONARY ARTERY [None]
  - BENIGN NEOPLASM OF ADRENAL GLAND [None]
